FAERS Safety Report 24235322 (Version 2)
Quarter: 2024Q3

REPORT INFORMATION
  Report Type: Report from Study
  Country: US (occurrence: US)
  Receive Date: 20240821
  Receipt Date: 20240910
  Transmission Date: 20241017
  Serious: No
  Sender: BAUSCH AND LOMB
  Company Number: US-BAUSCHBL-2024BNL031889

PATIENT
  Age: 82 Year
  Sex: Male

DRUGS (1)
  1. MIEBO [Suspect]
     Active Substance: PERFLUOROHEXYLOCTANE
     Indication: Product used for unknown indication
     Dosage: APPLY 1 DROP IN EACH EYE TO EYE 4 (FOUR) TIMES A DAY.
     Route: 047
     Dates: start: 20240720, end: 20240801

REACTIONS (1)
  - Visual impairment [Recovered/Resolved]

NARRATIVE: CASE EVENT DATE: 20240101
